FAERS Safety Report 9967787 (Version 1)
Quarter: 2014Q1

REPORT INFORMATION
  Report Type: Report from Study
  Country: US (occurrence: US)
  Receive Date: 20140306
  Receipt Date: 20140306
  Transmission Date: 20141002
  Serious: No
  Sender: FDA-Public Use
  Company Number: US-ABBVIE-13P-163-1144880-00

PATIENT
  Age: 52 Year
  Sex: Female

DRUGS (20)
  1. HUMIRA [Suspect]
     Indication: RHEUMATOID ARTHRITIS
     Dates: start: 201306
  2. IRON [Concomitant]
     Indication: ANAEMIA
     Dosage: 325 MG DAILY
  3. CYMBALTA [Concomitant]
     Indication: DEPRESSION
     Dosage: 60 MG DAILY
  4. VITAMIN D [Concomitant]
     Indication: VITAMIN D DECREASED
  5. B12 [Concomitant]
     Indication: VITAMIN B12 DECREASED
     Route: 050
  6. HYDROCHLOORTHIAZIDE [Concomitant]
     Indication: HYPERTENSION
     Dosage: 25 MG DAILY
  7. ZOCARE [Concomitant]
     Indication: BLOOD CHOLESTEROL INCREASED
     Dates: start: 201302
  8. SINGULAIR [Concomitant]
     Indication: ASTHMA
     Dosage: 10 MG DAILY
  9. PROAIR [Concomitant]
     Indication: ASTHMA
     Dosage: UP TO 4X DAILY AS NEEDED
  10. ADVAIR [Concomitant]
     Indication: ASTHMA
     Dosage: 20/50 2X/DAILY
  11. THEOPHYLLINE ER [Concomitant]
     Indication: ASTHMA
     Dosage: 200 MG DAILY
  12. MULTIVITAMIN [Concomitant]
     Indication: PRODUCT USED FOR UNKNOWN INDICATION
  13. CALCIUM [Concomitant]
     Indication: BLOOD CALCIUM DECREASED
     Dosage: 1000 MG DAILY
  14. MAGNESIUM [Concomitant]
     Indication: GASTROINTESTINAL DISORDER
     Dosage: 200 MG DAILY
  15. FOLIC ACID [Concomitant]
     Indication: DRUG LEVEL DECREASED
  16. ZINC [Concomitant]
     Indication: OSTEOPOROSIS PROPHYLAXIS
     Dosage: 15 MG DAILY
  17. OMEGA 3 FISH OIL [Concomitant]
     Indication: PRODUCT USED FOR UNKNOWN INDICATION
  18. STEROID ANTIBACTERIALS [Concomitant]
     Indication: PRODUCT USED FOR UNKNOWN INDICATION
     Dosage: TAPERING DOSE
  19. MORPHINE SR [Concomitant]
     Indication: PAIN
  20. OTC ZZQUIL [Concomitant]
     Indication: INSOMNIA

REACTIONS (1)
  - Lower respiratory tract infection [Not Recovered/Not Resolved]
